FAERS Safety Report 9056392 (Version 1)
Quarter: 2013Q1

REPORT INFORMATION
  Report Type: Spontaneous
  Country: US (occurrence: US)
  Receive Date: 20130204
  Receipt Date: 20130204
  Transmission Date: 20140127
  Serious: Yes (Hospitalization)
  Sender: FDA-Public Use
  Company Number: US-BAYER-2013-012240

PATIENT
  Age: 32 Year
  Sex: Female

DRUGS (5)
  1. YAZ [Suspect]
  2. TYLENOL 3 [Concomitant]
  3. SOMA [Concomitant]
  4. NICODERM [Concomitant]
  5. PERCOCET [Concomitant]

REACTIONS (1)
  - Pulmonary embolism [Recovered/Resolved]
